FAERS Safety Report 15737181 (Version 1)
Quarter: 2018Q4

REPORT INFORMATION
  Report Type: Spontaneous
  Country: US (occurrence: US)
  Receive Date: 20181218
  Receipt Date: 20181218
  Transmission Date: 20190205
  Serious: No
  Sender: FDA-Public Use
  Company Number: US-SA-2018SA344447

PATIENT
  Sex: Female
  Weight: 78.01 kg

DRUGS (10)
  1. METOPROLOL SUCCINATE. [Concomitant]
     Active Substance: METOPROLOL SUCCINATE
     Dosage: 25 MG
  2. CHLORHEXIDINE GLUCONATE. [Concomitant]
     Active Substance: CHLORHEXIDINE GLUCONATE
  3. IBUPROFEN. [Concomitant]
     Active Substance: IBUPROFEN
     Dosage: 600 MG
  4. AMOXICILLIN. [Concomitant]
     Active Substance: AMOXICILLIN
     Dosage: 500 MG
  5. SHINGRIX [Concomitant]
     Active Substance: RECOMBINANT VARICELLA ZOSTER VIRUS (VZV) GLYCOPROTEIN E
     Dosage: 50 UG
  6. MULTIVITAMINS [VITAMINS NOS] [Concomitant]
     Active Substance: VITAMINS
  7. NYSTATIN. [Concomitant]
     Active Substance: NYSTATIN
  8. FLUZONE HIGH DOSE [Concomitant]
     Dosage: 180 UG
     Dates: start: 2018
  9. PANTOPRAZOLE SODIUM. [Concomitant]
     Active Substance: PANTOPRAZOLE SODIUM
     Dosage: 40 MG
  10. PRALUENT [Suspect]
     Active Substance: ALIROCUMAB
     Indication: TYPE IIA HYPERLIPIDAEMIA
     Dosage: 75 MG, QOW
     Route: 058
     Dates: start: 201809

REACTIONS (12)
  - Vulvovaginal pruritus [Unknown]
  - Muscle twitching [Unknown]
  - Cough [Recovering/Resolving]
  - Injection site pruritus [Unknown]
  - Dry skin [Unknown]
  - Pollakiuria [Unknown]
  - Skin wrinkling [Unknown]
  - Influenza [Recovering/Resolving]
  - Injection site erythema [Unknown]
  - Myalgia [Unknown]
  - Pain in extremity [Unknown]
  - Dry mouth [Unknown]

NARRATIVE: CASE EVENT DATE: 201810
